FAERS Safety Report 4677229-0 (Version None)
Quarter: 2005Q2

REPORT INFORMATION
  Report Type: 
  Country: None (occurrence: None)
  Receive Date: 20050526
  Receipt Date: 20050511
  Transmission Date: 20051028
  Serious: Yes (Hospitalization)
  Sender: FDA-Public Use
  Company Number: 2005-03-0006

PATIENT
  Age: 73 Year
  Sex: Male
  Weight: 68 kg

DRUGS (9)
  1. CLARITIN [Suspect]
     Indication: INFLUENZA
     Dosage: 10 MG ORAL
     Route: 048
     Dates: start: 20050224, end: 20050225
  2. TAMIFLU [Suspect]
     Indication: INFLUENZA
     Dosage: 150 MG ORAL
     Route: 048
     Dates: start: 20050224, end: 20050225
  3. ALLOPURINOL [Concomitant]
  4. LANIRAPID TABLETS [Concomitant]
  5. LASIX [Concomitant]
  6. ALDACTONE-A  TABLETS [Concomitant]
  7. DIOVAN TABLETS [Concomitant]
  8. PRAVASTATIN SODIUM TABLETS [Concomitant]
  9. SIGMART TABLETS [Concomitant]

REACTIONS (9)
  - ANGIONEUROTIC OEDEMA [None]
  - BLOOD CREATININE ABNORMAL [None]
  - DERMATITIS EXFOLIATIVE [None]
  - EOSINOPHIL COUNT ABNORMAL [None]
  - FACE OEDEMA [None]
  - HAEMOGLOBIN ABNORMAL [None]
  - LYMPHOCYTE COUNT ABNORMAL [None]
  - PLATELET COUNT ABNORMAL [None]
  - PYREXIA [None]
